FAERS Safety Report 8016110-6 (Version None)
Quarter: 2011Q4

REPORT INFORMATION
  Report Type: 
  Country: None (occurrence: None)
  Receive Date: 20111230
  Receipt Date: 20111205
  Transmission Date: 20120403
  Serious: No
  Sender: FDA-Public Use
  Company Number: US-BAYER-2011-124402

PATIENT
  Age: 58 Year
  Sex: Female

DRUGS (3)
  1. B-COMPLEX [VITAMIN B NOS] [Concomitant]
  2. ALEVE (CAPLET) [Suspect]
     Indication: PAIN
  3. ALKA-SELTZER PLUS COLD + COUGH [Suspect]
     Indication: SEASONAL ALLERGY
     Route: 048

REACTIONS (2)
  - RASH [None]
  - CHAPPED LIPS [None]
